FAERS Safety Report 15752036 (Version 1)
Quarter: 2018Q4

REPORT INFORMATION
  Report Type: Report from Study
  Country: US (occurrence: US)
  Receive Date: 20181221
  Receipt Date: 20181221
  Transmission Date: 20190205
  Serious: Yes (Hospitalization)
  Sender: FDA-Public Use
  Company Number: US-ACTELION-A-NJ2018-181663

PATIENT
  Age: 31 Year
  Sex: Female

DRUGS (8)
  1. VELETRI [Suspect]
     Active Substance: EPOPROSTENOL
     Dosage: 20 NG/KG, PER MIN
     Route: 042
  2. UPTRAVI [Suspect]
     Active Substance: SELEXIPAG
     Indication: PULMONARY ARTERIAL HYPERTENSION
     Dosage: 1200 UNK, UNK
     Route: 048
     Dates: start: 20180417
  3. PREDNISONE. [Concomitant]
     Active Substance: PREDNISONE
  4. VELETRI [Suspect]
     Active Substance: EPOPROSTENOL
     Dosage: 12 NG/KG, PER MIN
     Route: 042
  5. ADCIRCA [Concomitant]
     Active Substance: TADALAFIL
  6. OPSUMIT [Suspect]
     Active Substance: MACITENTAN
     Indication: PULMONARY ARTERIAL HYPERTENSION
     Dosage: 10 MG, QD
     Route: 048
     Dates: start: 20140815
  7. CELLCEPT [Concomitant]
     Active Substance: MYCOPHENOLATE MOFETIL\MYCOPHENOLATE MOFETIL HYDROCHLORIDE
     Dosage: 250 MG, QD
     Route: 048
  8. VELETRI [Suspect]
     Active Substance: EPOPROSTENOL
     Indication: PULMONARY ARTERIAL HYPERTENSION
     Dosage: 9 NG/KG, PER MIN
     Route: 042
     Dates: start: 20181101

REACTIONS (22)
  - Pain in jaw [Unknown]
  - Productive cough [Unknown]
  - Abdominal distension [Unknown]
  - Oedema peripheral [Unknown]
  - Condition aggravated [Recovered/Resolved]
  - Nausea [Unknown]
  - Hyperaesthesia [Not Recovered/Not Resolved]
  - Cellulitis [Recovering/Resolving]
  - Headache [Unknown]
  - Vomiting [Not Recovered/Not Resolved]
  - Rash [Unknown]
  - Diarrhoea [Unknown]
  - Dizziness [Recovering/Resolving]
  - Micturition disorder [Recovered/Resolved]
  - Cough [Recovered/Resolved]
  - Oedema [Recovered/Resolved]
  - Generalised oedema [Unknown]
  - Device dislocation [Recovered/Resolved]
  - Rash pruritic [Not Recovered/Not Resolved]
  - Flushing [Not Recovered/Not Resolved]
  - Myalgia [Not Recovered/Not Resolved]
  - Tremor [Unknown]

NARRATIVE: CASE EVENT DATE: 201811
